FAERS Safety Report 4618487-8 (Version None)
Quarter: 2005Q1

REPORT INFORMATION
  Report Type: 
  Country: None (occurrence: None)
  Receive Date: 20050323
  Receipt Date: 20050310
  Transmission Date: 20050727
  Serious: Yes (Other)
  Sender: FDA-Public Use
  Company Number: 2005044225

PATIENT
  Sex: Male

DRUGS (1)
  1. MAGNEX                   (SULBACTAM, CEFOPERAZONE) [Suspect]
     Indication: INFECTION

REACTIONS (2)
  - GENERAL PHYSICAL HEALTH DETERIORATION [None]
  - UNEVALUABLE EVENT [None]
